FAERS Safety Report 18343447 (Version 1)
Quarter: 2020Q4

REPORT INFORMATION
  Report Type: Spontaneous
  Country: US (occurrence: US)
  Receive Date: 20201004
  Receipt Date: 20201004
  Transmission Date: 20210113
  Serious: Yes (Other)
  Sender: FDA-Public Use
  Company Number: None

PATIENT
  Age: 45 Year
  Sex: Female
  Weight: 78.75 kg

DRUGS (1)
  1. PROAIR HFA [Suspect]
     Active Substance: ALBUTEROL SULFATE
     Indication: ASTHMA
     Dosage: ?          QUANTITY:2 PUFF(S);?
     Route: 055
     Dates: start: 20190501, end: 20201002

REACTIONS (5)
  - Recalled product administered [None]
  - Palpitations [None]
  - Drug ineffective [None]
  - Chest pain [None]
  - Device defective [None]

NARRATIVE: CASE EVENT DATE: 20200914
